FAERS Safety Report 18168903 (Version 3)
Quarter: 2021Q2

REPORT INFORMATION
  Report Type: Spontaneous
  Country: US (occurrence: US)
  Receive Date: 20200819
  Receipt Date: 20210618
  Transmission Date: 20210717
  Serious: Yes (Other)
  Sender: FDA-Public Use
  Company Number: US-PFIZER INC-2016025306

PATIENT
  Age: 61 Year
  Sex: Female
  Weight: 74.83 kg

DRUGS (2)
  1. DILANTIN [Suspect]
     Active Substance: PHENYTOIN
     Dosage: 100 MG, 1 CAPSULE TID (THREE TIMES A DAY)
     Route: 048
     Dates: start: 20210112
  2. DILANTIN [Suspect]
     Active Substance: PHENYTOIN
     Indication: EPILEPSY
     Dosage: 100 MG

REACTIONS (4)
  - Head injury [Unknown]
  - Amnesia [Unknown]
  - Seizure [Unknown]
  - Limb injury [Unknown]

NARRATIVE: CASE EVENT DATE: 20200930
